FAERS Safety Report 25333729 (Version 1)
Quarter: 2025Q2

REPORT INFORMATION
  Report Type: Report from Study
  Country: CN (occurrence: CN)
  Receive Date: 20250520
  Receipt Date: 20250520
  Transmission Date: 20250717
  Serious: Yes (Death, Other)
  Sender: GLAXOSMITHKLINE
  Company Number: CN-GSK-CN2025GSK060975

PATIENT

DRUGS (2)
  1. BELIMUMAB [Suspect]
     Active Substance: BELIMUMAB
     Indication: Immune thrombocytopenia
  2. BELIMUMAB [Suspect]
     Active Substance: BELIMUMAB
     Indication: Connective tissue disorder

REACTIONS (1)
  - Pneumonia [Fatal]
